FAERS Safety Report 13685400 (Version 1)
Quarter: 2017Q2

REPORT INFORMATION
  Report Type: Spontaneous
  Country: RO (occurrence: RO)
  Receive Date: 20170623
  Receipt Date: 20170623
  Transmission Date: 20170830
  Serious: Yes (Other)
  Sender: FDA-Public Use
  Company Number: RO-MYLANLABS-2017M1037070

PATIENT

DRUGS (3)
  1. DACARBAZINE. [Suspect]
     Active Substance: DACARBAZINE
     Indication: MALIGNANT MELANOMA
     Dosage: 600 MG
     Route: 065
  2. CISPLATIN. [Suspect]
     Active Substance: CISPLATIN
     Indication: MALIGNANT MELANOMA
     Dosage: 100 MG
     Route: 065
  3. VINBLASTINE [Suspect]
     Active Substance: VINBLASTINE
     Indication: MALIGNANT MELANOMA
     Dosage: 10 MG
     Route: 065

REACTIONS (2)
  - Lymph node tuberculosis [Recovered/Resolved]
  - Tuberculosis [Recovered/Resolved]
